FAERS Safety Report 11914619 (Version 1)
Quarter: 2016Q1

REPORT INFORMATION
  Report Type: Spontaneous
  Country: US (occurrence: US)
  Receive Date: 20160113
  Receipt Date: 20160113
  Transmission Date: 20160526
  Serious: Yes (Hospitalization, Other)
  Sender: FDA-Public Use
  Company Number: US-GLAXOSMITHKLINE-US2016004083

PATIENT
  Sex: Male

DRUGS (1)
  1. ADVAIR DISKUS [Suspect]
     Active Substance: FLUTICASONE PROPIONATE\SALMETEROL XINAFOATE
     Indication: LUNG NEOPLASM MALIGNANT
     Dosage: 1 PUFF(S), BID
     Route: 055

REACTIONS (3)
  - Lung neoplasm malignant [Recovered/Resolved]
  - Off label use [Not Recovered/Not Resolved]
  - Lung lobectomy [Recovered/Resolved]

NARRATIVE: CASE EVENT DATE: 2005
